FAERS Safety Report 16983871 (Version 2)
Quarter: 2019Q4

REPORT INFORMATION
  Report Type: Spontaneous
  Country: US (occurrence: US)
  Receive Date: 20191101
  Receipt Date: 20191129
  Transmission Date: 20200122
  Serious: Yes (Hospitalization)
  Sender: FDA-Public Use
  Company Number: US-ASTRAZENECA-2019SF52899

PATIENT
  Age: 28825 Day
  Sex: Female

DRUGS (4)
  1. LYNPARZA [Suspect]
     Active Substance: OLAPARIB
     Indication: OVARIAN CANCER
     Route: 048
     Dates: start: 201802
  2. LYNPARZA [Suspect]
     Active Substance: OLAPARIB
     Indication: OVARIAN CANCER
     Dosage: SHE TOOK HER 2 LYNPARZA TABLETS AT 8 AM, AND AT 9 AM, WHEN SHE EMPTIED HER OSTOMY BAG, BOTH LYNPA...
     Route: 048
     Dates: start: 20191022
  3. LYNPARZA [Suspect]
     Active Substance: OLAPARIB
     Indication: OVARIAN CANCER
     Dosage: TOOK 2 MORE LYNPARZA TABLETS AT 8 AM THE MORNING
     Route: 048
     Dates: start: 20191023
  4. ALEVE [Concomitant]
     Active Substance: NAPROXEN SODIUM
     Route: 048

REACTIONS (6)
  - Intestinal obstruction [Recovered/Resolved]
  - Product residue present [Unknown]
  - Product solubility abnormal [Unknown]
  - Incorrect dose administered [Unknown]
  - Diarrhoea [Unknown]
  - Dysphagia [Unknown]

NARRATIVE: CASE EVENT DATE: 20191016
